FAERS Safety Report 9846875 (Version 1)
Quarter: 2014Q1

REPORT INFORMATION
  Report Type: Spontaneous
  Country: US (occurrence: US)
  Receive Date: 20140127
  Receipt Date: 20140127
  Transmission Date: 20141002
  Serious: Yes (Other)
  Sender: FDA-Public Use
  Company Number: US-PFIZER INC-2014022683

PATIENT
  Age: 66 Year
  Sex: Male
  Weight: 83.9 kg

DRUGS (2)
  1. PHENYTOIN [Suspect]
     Indication: CONVULSION
     Dosage: TWO TABLETS OF 100MG IN MORNING AND ONE TABLET OF 100MG AT NIGHT
     Dates: start: 2002
  2. LEVETIRACETAM [Concomitant]
     Dosage: 1500 MG, 2X/DAY

REACTIONS (7)
  - Abasia [Not Recovered/Not Resolved]
  - Back disorder [Unknown]
  - Gait disturbance [Not Recovered/Not Resolved]
  - Coordination abnormal [Not Recovered/Not Resolved]
  - Myalgia [Not Recovered/Not Resolved]
  - Nervousness [Not Recovered/Not Resolved]
  - Hypoaesthesia [Not Recovered/Not Resolved]
